FAERS Safety Report 5093050-6 (Version None)
Quarter: 2006Q3

REPORT INFORMATION
  Report Type: 
  Country: None (occurrence: None)
  Receive Date: 20060830
  Receipt Date: 20060818
  Transmission Date: 20061208
  Serious: Yes (Other)
  Sender: FDA-Public Use
  Company Number: PHBS2006SE12682

PATIENT
  Age: 68 Year
  Sex: Female

DRUGS (2)
  1. TRILEPTAL [Suspect]
     Route: 065
  2. TROMBYL [Concomitant]
     Dosage: 160 MG/D
     Route: 048

REACTIONS (5)
  - DYSPNOEA [None]
  - GASTROINTESTINAL HAEMORRHAGE [None]
  - HAEMOGLOBIN DECREASED [None]
  - HAEMORRHAGE [None]
  - IRON DEFICIENCY ANAEMIA [None]
